FAERS Safety Report 8905188 (Version 1)
Quarter: 2012Q4

REPORT INFORMATION
  Report Type: 
  Country: US (occurrence: US)
  Receive Date: 20121109
  Receipt Date: 20121109
  Transmission Date: 20130627
  Serious: Yes (Hospitalization)
  Sender: FDA-Public Use
  Company Number: US-ASTRAZENECA-2012SE83185

PATIENT
  Age: 66 Year
  Sex: Female

DRUGS (3)
  1. LISINOPRIL [Suspect]
     Route: 048
  2. BRILINTA [Suspect]
     Indication: STENT PLACEMENT
     Route: 048
     Dates: start: 20121001, end: 20121029
  3. ZOLOFT [Concomitant]
     Route: 048

REACTIONS (2)
  - Dyspnoea [Unknown]
  - Pneumonia [Unknown]
